FAERS Safety Report 4578597-0 (Version None)
Quarter: 2005Q1

REPORT INFORMATION
  Report Type: 
  Country: None (occurrence: None)
  Receive Date: 20050211
  Receipt Date: 20050127
  Transmission Date: 20050727
  Serious: Yes (Death)
  Sender: FDA-Public Use
  Company Number: JP-JNJFOC-20040203116

PATIENT
  Sex: Female

DRUGS (6)
  1. DUROTEP [Suspect]
     Route: 062
     Dates: start: 20031126
  2. DUROTEP [Suspect]
     Indication: CANCER PAIN
     Route: 062
     Dates: start: 20031126
  3. AMLODIPINE BESYLATE [Concomitant]
     Indication: HYPERTENSION
     Route: 049
     Dates: start: 20031002
  4. ATENOLOL [Concomitant]
     Indication: HYPERTENSION
     Route: 049
     Dates: start: 20031002
  5. TRIAZOLAM [Concomitant]
     Indication: SLEEP DISORDER
     Route: 049
     Dates: start: 20031119
  6. FUROSEMIDE [Concomitant]
     Indication: DIURETIC THERAPY
     Route: 049
     Dates: start: 20031214

REACTIONS (1)
  - UTERINE CANCER [None]
